FAERS Safety Report 20068465 (Version 2)
Quarter: 2021Q4

REPORT INFORMATION
  Report Type: Spontaneous
  Country: US (occurrence: US)
  Receive Date: 20211115
  Receipt Date: 20211126
  Transmission Date: 20220303
  Serious: No
  Sender: FDA-Public Use
  Company Number: US-TAKEDA-2021TUS070753

PATIENT
  Sex: Male
  Weight: 68 kg

DRUGS (2)
  1. TRINTELLIX [Suspect]
     Active Substance: VORTIOXETINE HYDROBROMIDE
     Indication: Depression
     Dosage: 10 MILLIGRAM, QD
     Route: 048
  2. FANAPT [Concomitant]
     Active Substance: ILOPERIDONE
     Dosage: 12 GRAM, QD
     Route: 048

REACTIONS (1)
  - Insomnia [Recovered/Resolved]
